FAERS Safety Report 19297505 (Version 1)
Quarter: 2021Q2

REPORT INFORMATION
  Report Type: Spontaneous
  Country: US (occurrence: US)
  Receive Date: 20210524
  Receipt Date: 20210524
  Transmission Date: 20210717
  Serious: Yes (Other)
  Sender: FDA-Public Use
  Company Number: US-SUN PHARMACEUTICAL INDUSTRIES LTD-2021R1-297637

PATIENT
  Age: 38 Year
  Sex: Female
  Weight: 58.4 kg

DRUGS (8)
  1. CALCIUM CARBONATE. [Suspect]
     Active Substance: CALCIUM CARBONATE
     Indication: OSTEOMALACIA
     Dosage: 1250 MG, 2 TIMES DAILY
     Route: 065
  2. PHOSPHORUS [Suspect]
     Active Substance: PHOSPHORUS
     Dosage: 30 MMOL , 2?3 TIMES PER WEEK
     Route: 042
  3. GEMCITABINE. [Suspect]
     Active Substance: GEMCITABINE
     Indication: CHEMOTHERAPY
     Dosage: UNK
     Route: 065
  4. ERGOCALCIFEROL. [Suspect]
     Active Substance: ERGOCALCIFEROL
     Indication: OSTEOMALACIA
     Dosage: 50000 U WEEKLY
     Route: 065
  5. PHOSPHORUS [Suspect]
     Active Substance: PHOSPHORUS
     Indication: OSTEOMALACIA
     Dosage: 40?60 MMOL PER DAY
     Route: 042
  6. PHOSPHORUS [Suspect]
     Active Substance: PHOSPHORUS
     Indication: BLOOD PHOSPHORUS DECREASED
     Dosage: 750 MG 4 TIMES A DAY
     Route: 048
  7. CALCITRIOL. [Suspect]
     Active Substance: CALCITRIOL
     Indication: OSTEOMALACIA
     Dosage: 0.25 MCG 2 TIMES DAILY
     Route: 065
  8. CARBOPLATIN. [Suspect]
     Active Substance: CARBOPLATIN
     Indication: CHEMOTHERAPY
     Dosage: UNK
     Route: 065

REACTIONS (1)
  - Condition aggravated [Unknown]
